FAERS Safety Report 7021005-0 (Version None)
Quarter: 2010Q3

REPORT INFORMATION
  Report Type: 
  Country: None (occurrence: None)
  Receive Date: 20100929
  Receipt Date: 20100921
  Transmission Date: 20110219
  Serious: Yes (Other)
  Sender: FDA-Public Use
  Company Number: US-PFIZER INC-2010120471

PATIENT
  Sex: Male

DRUGS (1)
  1. LIPITOR [Suspect]
     Dosage: UNK
     Dates: start: 20000101

REACTIONS (4)
  - HIP ARTHROPLASTY [None]
  - MUSCLE TIGHTNESS [None]
  - TENDON DISORDER [None]
  - TENDONITIS [None]
